FAERS Safety Report 7636926-5 (Version None)
Quarter: 2011Q3

REPORT INFORMATION
  Report Type: 
  Country: None (occurrence: None)
  Receive Date: 20110722
  Receipt Date: 20110722
  Transmission Date: 20111222
  Serious: Yes (Hospitalization)
  Sender: FDA-Public Use
  Company Number: None

PATIENT
  Age: 79 Year
  Sex: Male
  Weight: 75.3 kg

DRUGS (5)
  1. VITAMIN D [Concomitant]
  2. PRILOSEC [Concomitant]
  3. ASPIRIN [Concomitant]
  4. VIIBRYD [Suspect]
     Indication: MAJOR DEPRESSION
     Dosage: 10MG DAILY ORAL
     Route: 048
     Dates: start: 20110630, end: 20110705
  5. LOVAZA [Concomitant]

REACTIONS (4)
  - HYPOAESTHESIA [None]
  - PARAESTHESIA [None]
  - GAIT DISTURBANCE [None]
  - PARAPARESIS [None]
